FAERS Safety Report 19130961 (Version 1)
Quarter: 2021Q2

REPORT INFORMATION
  Report Type: Spontaneous
  Country: IT (occurrence: IT)
  Receive Date: 20210413
  Receipt Date: 20210413
  Transmission Date: 20210717
  Serious: Yes (Other)
  Sender: FDA-Public Use
  Company Number: IT-PFIZER INC-2021357584

PATIENT
  Age: 33 Year
  Sex: Female
  Weight: 74 kg

DRUGS (1)
  1. LOETTE [Suspect]
     Active Substance: ETHINYL ESTRADIOL\LEVONORGESTREL
     Indication: ORAL CONTRACEPTION
     Dosage: 1 DF, 1X/DAY
     Dates: start: 20200201, end: 20210108

REACTIONS (3)
  - Thrombophlebitis superficial [Recovering/Resolving]
  - Axillary vein thrombosis [Recovering/Resolving]
  - Pain in extremity [Recovering/Resolving]

NARRATIVE: CASE EVENT DATE: 20210108
